FAERS Safety Report 4552465-2 (Version None)
Quarter: 2005Q1

REPORT INFORMATION
  Report Type: 
  Country: None (occurrence: None)
  Receive Date: 20050114
  Receipt Date: 20040831
  Transmission Date: 20050727
  Serious: No
  Sender: FDA-Public Use
  Company Number: US-BRISTOL-MYERS SQUIBB COMPANY-12688669

PATIENT
  Age: 39 Year
  Sex: Male
  Weight: 43 kg

DRUGS (10)
  1. CISPLATIN [Suspect]
     Indication: TESTIS CANCER
     Dosage: 20 MG/M2
     Route: 042
     Dates: start: 20040830, end: 20040830
  2. BLEOMYCIN [Concomitant]
     Indication: TESTIS CANCER
  3. ETOPOSIDE [Concomitant]
     Indication: TESTIS CANCER
  4. MANNITOL [Concomitant]
  5. ZOFRAN [Concomitant]
     Indication: PREMEDICATION
     Route: 042
  6. DECADRON [Concomitant]
     Indication: PREMEDICATION
     Route: 042
  7. COMPAZINE [Concomitant]
     Indication: PREMEDICATION
     Route: 042
  8. NORMAL SALINE [Concomitant]
     Indication: PREMEDICATION
  9. POTASSIUM CHLORIDE [Concomitant]
     Indication: PREMEDICATION
     Route: 042
  10. MAGNESIUM [Concomitant]
     Indication: PREMEDICATION
     Route: 042

REACTIONS (1)
  - TREMOR [None]
